FAERS Safety Report 24531700 (Version 1)
Quarter: 2024Q4

REPORT INFORMATION
  Report Type: Report from Study
  Country: CA (occurrence: CA)
  Receive Date: 20241022
  Receipt Date: 20241022
  Transmission Date: 20250114
  Serious: No
  Sender: ROCHE
  Company Number: CA-ROCHE-3570341

PATIENT
  Sex: Female

DRUGS (3)
  1. PULMOZYME [Suspect]
     Active Substance: DORNASE ALFA
     Indication: Cystic fibrosis
     Dosage: NO PIRS RECEIVED, DOSING DETAILS AS PER PRESCRIPTION RECEIVED
     Route: 055
     Dates: start: 20130807
  2. PULMOZYME [Suspect]
     Active Substance: DORNASE ALFA
     Dosage: AS NEEDED
     Route: 055
  3. TRIKAFTA [Concomitant]
     Active Substance: ELEXACAFTOR\IVACAFTOR\TEZACAFTOR
     Dates: start: 20220316

REACTIONS (2)
  - Intentional product misuse [Unknown]
  - Viral infection [Recovered/Resolved]
